FAERS Safety Report 15694180 (Version 1)
Quarter: 2018Q4

REPORT INFORMATION
  Report Type: Spontaneous
  Country: CN (occurrence: CN)
  Receive Date: 20181206
  Receipt Date: 20181206
  Transmission Date: 20190205
  Serious: Yes (Hospitalization)
  Sender: FDA-Public Use
  Company Number: PHHY2018CN175020

PATIENT
  Age: 42 Year
  Sex: Male
  Weight: 61.5 kg

DRUGS (2)
  1. NUPRIN [Suspect]
     Active Substance: IBUPROFEN
     Indication: TRIGEMINAL NEURALGIA
     Dosage: 0.1 G, TID
     Route: 048
     Dates: start: 20180425, end: 20180626
  2. TEGRETOL [Suspect]
     Active Substance: CARBAMAZEPINE
     Indication: TRIGEMINAL NEURALGIA
     Dosage: 0.1 G, BID
     Route: 048
     Dates: start: 20180425, end: 20180626

REACTIONS (3)
  - Mouth ulceration [Recovered/Resolved]
  - Rash [Recovered/Resolved]
  - Pruritus [Recovered/Resolved]

NARRATIVE: CASE EVENT DATE: 20180626
